FAERS Safety Report 7674464-4 (Version None)
Quarter: 2011Q3

REPORT INFORMATION
  Report Type: 
  Country: None (occurrence: None)
  Receive Date: 20110810
  Receipt Date: 20110802
  Transmission Date: 20111222
  Serious: Yes (Hospitalization)
  Sender: FDA-Public Use
  Company Number: BR-ROCHE-731986

PATIENT
  Sex: Female
  Weight: 57 kg

DRUGS (11)
  1. TOCILIZUMAB [Suspect]
     Route: 042
     Dates: start: 20101120
  2. METOCLOPRAMIDE HYDROCHLORIDE [Concomitant]
  3. TOCILIZUMAB [Suspect]
     Indication: RHEUMATOID ARTHRITIS
     Dosage: INFUSION
     Route: 042
     Dates: start: 20100901, end: 20101004
  4. ROCALTROL [Concomitant]
     Route: 048
  5. PREDNISONE [Concomitant]
  6. PIROXICAM [Concomitant]
  7. TRAMADOL HYDROCHLORIDE [Concomitant]
  8. IBUPROFEN [Concomitant]
  9. METICORTEN [Concomitant]
  10. PHENERGAN [Concomitant]
  11. AMYTRIL [Concomitant]

REACTIONS (10)
  - ARTHRALGIA [None]
  - PYREXIA [None]
  - NAUSEA [None]
  - CHEILITIS [None]
  - URINARY TRACT INFECTION [None]
  - INCREASED BRONCHIAL SECRETION [None]
  - FATIGUE [None]
  - ASTHENIA [None]
  - PAIN [None]
  - BURNING SENSATION [None]
